FAERS Safety Report 6165873-3 (Version None)
Quarter: 2009Q2

REPORT INFORMATION
  Report Type: 
  Country: None (occurrence: None)
  Receive Date: 20090423
  Receipt Date: 20090415
  Transmission Date: 20091009
  Serious: Yes (Hospitalization)
  Sender: FDA-Public Use
  Company Number: CH-MERCK-0904CHE00005

PATIENT
  Age: 57 Year
  Sex: Male

DRUGS (12)
  1. VYTORIN [Suspect]
     Indication: HYPERCHOLESTEROLAEMIA
     Route: 048
  2. LANSOPRAZOLE [Concomitant]
     Route: 048
  3. ASPIRIN [Concomitant]
     Route: 048
  4. ATENOLOL [Concomitant]
     Route: 048
  5. ENOXAPARIN SODIUM [Concomitant]
     Route: 058
  6. ACETAMINOPHEN [Concomitant]
     Route: 048
  7. AMLODIPINE BESYLATE AND VALSARTAN [Concomitant]
     Route: 048
  8. INSULIN GLARGINE [Concomitant]
     Route: 058
  9. METFORMIN HYDROCHLORIDE [Concomitant]
     Route: 048
  10. NYSTATIN [Concomitant]
  11. DIPYRONE [Concomitant]
     Route: 048
  12. ZOLPIDEM TARTRATE [Concomitant]
     Route: 048

REACTIONS (6)
  - ANOREXIA [None]
  - DEPRESSION [None]
  - HIP ARTHROPLASTY [None]
  - INSOMNIA [None]
  - NORMOCHROMIC NORMOCYTIC ANAEMIA [None]
  - OCULAR NEOPLASM [None]
